FAERS Safety Report 5262637-X (Version None)
Quarter: 2007Q1

REPORT INFORMATION
  Report Type: 
  Country: None (occurrence: None)
  Receive Date: 20070312
  Receipt Date: 20070228
  Transmission Date: 20070707
  Serious: Yes (Hospitalization)
  Sender: FDA-Public Use
  Company Number: 2007UW04069

PATIENT
  Sex: Female
  Weight: 74.5 kg

DRUGS (12)
  1. SEROQUEL [Suspect]
     Indication: SCHIZOPHRENIA
     Dosage: 1000 MG
     Dates: start: 19980101
  2. ZYPREXA [Suspect]
     Dates: start: 20020430, end: 20021112
  3. RISPERDAL [Suspect]
     Dates: start: 20050509, end: 20050919
  4. ABILIFY [Concomitant]
  5. CLOZARIL [Concomitant]
  6. GEODON [Concomitant]
  7. HALDOL [Concomitant]
     Dates: start: 20000425, end: 20050131
  8. NAVANE [Concomitant]
     Dates: start: 20011205, end: 20011219
  9. STELAZINE [Concomitant]
  10. THORAZINE [Concomitant]
  11. TRILAFON [Concomitant]
  12. OTHER PSYCHIATRIC MEDICATIONS, UNKNOWN NAMES [Concomitant]

REACTIONS (10)
  - BLOOD CHOLESTEROL INCREASED [None]
  - DIABETES MELLITUS [None]
  - EYE DISORDER [None]
  - HYPERTENSION [None]
  - ILL-DEFINED DISORDER [None]
  - NAUSEA [None]
  - PAIN [None]
  - PRURITUS [None]
  - TRIGEMINAL NEURALGIA [None]
  - URINARY TRACT INFECTION [None]
